FAERS Safety Report 20376912 (Version 1)
Quarter: 2022Q1

REPORT INFORMATION
  Report Type: Spontaneous
  Country: US (occurrence: US)
  Receive Date: 20220125
  Receipt Date: 20220125
  Transmission Date: 20220423
  Serious: No
  Sender: FDA-Public Use
  Company Number: US-009507513-2201USA003841

PATIENT
  Age: 57 Year
  Sex: Male

DRUGS (4)
  1. CUBICIN [Suspect]
     Active Substance: DAPTOMYCIN
     Indication: Purulent pericarditis
  2. CEFTAROLINE [Concomitant]
     Active Substance: CEFTAROLINE
     Indication: Purulent pericarditis
  3. VANCOMYCIN [Concomitant]
     Active Substance: VANCOMYCIN
     Indication: Purulent pericarditis
     Dosage: 3-GRAM LOADING DOSE
  4. VANCOMYCIN [Concomitant]
     Active Substance: VANCOMYCIN
     Dosage: 1.5 GRAM, Q12H

REACTIONS (1)
  - Off label use [Unknown]
